FAERS Safety Report 12886047 (Version 1)
Quarter: 2016Q4

REPORT INFORMATION
  Report Type: Spontaneous
  Country: US (occurrence: US)
  Receive Date: 20161025
  Receipt Date: 20161025
  Transmission Date: 20170207
  Serious: Yes (Disabling)
  Sender: FDA-Public Use
  Company Number: None

PATIENT
  Age: 60 Year
  Sex: Female
  Weight: 63 kg

DRUGS (3)
  1. VAGIFEM [Concomitant]
     Active Substance: ESTRADIOL
  2. SUMATRIPTAN SUCCINATE. [Concomitant]
     Active Substance: SUMATRIPTAN SUCCINATE
  3. LEVAFLOXACIN [Suspect]
     Active Substance: LEVOFLOXACIN
     Indication: URINARY TRACT INFECTION
     Dosage: ?          QUANTITY:1 CAPSULE(S);?
     Route: 048
     Dates: start: 20160224, end: 20160225

REACTIONS (8)
  - Hypoaesthesia [None]
  - Gait disturbance [None]
  - Alopecia [None]
  - Paraesthesia [None]
  - Toxicity to various agents [None]
  - Retinal tear [None]
  - Neuropathy peripheral [None]
  - Bladder irritation [None]

NARRATIVE: CASE EVENT DATE: 20160224
